FAERS Safety Report 11350255 (Version 1)
Quarter: 2015Q3

REPORT INFORMATION
  Report Type: Spontaneous
  Country: US (occurrence: US)
  Receive Date: 20150807
  Receipt Date: 20150807
  Transmission Date: 20151125
  Serious: Yes (Hospitalization)
  Sender: FDA-Public Use
  Company Number: US-PFIZER INC-2015253797

PATIENT
  Age: 63 Year
  Sex: Female

DRUGS (1)
  1. IBRANCE [Suspect]
     Active Substance: PALBOCICLIB
     Indication: BREAST CANCER
     Dosage: 125 MG, CYCLIC(EVERY DAY ON 1-21 OF 28 DAY CYCLE)
     Route: 048

REACTIONS (3)
  - Urinary tract infection [Unknown]
  - Oropharyngeal pain [Unknown]
  - Rhinorrhoea [Unknown]
